FAERS Safety Report 5767694-X (Version None)
Quarter: 2008Q2

REPORT INFORMATION
  Report Type: 
  Country: None (occurrence: None)
  Receive Date: 20080609
  Receipt Date: 20080529
  Transmission Date: 20081010
  Serious: Yes (Hospitalization)
  Sender: FDA-Public Use
  Company Number: JPI-P-003788

PATIENT
  Age: 57 Year
  Sex: Male

DRUGS (2)
  1. XYREM [Suspect]
     Indication: NARCOLEPSY
     Dosage: 4.5 G (2.25 GM,2 IN 1 D), ORAL
     Route: 048
     Dates: start: 20080225, end: 20080501
  2. VENLAFAXINE HCL [Concomitant]

REACTIONS (8)
  - ACUTE MYOCARDIAL INFARCTION [None]
  - CARDIAC FAILURE CONGESTIVE [None]
  - CONDITION AGGRAVATED [None]
  - MUSCULAR WEAKNESS [None]
  - MYALGIA [None]
  - NEURALGIA [None]
  - SOMNAMBULISM [None]
  - TREATMENT NONCOMPLIANCE [None]
